FAERS Safety Report 6154470-1 (Version None)
Quarter: 2009Q2

REPORT INFORMATION
  Report Type: 
  Country: None (occurrence: None)
  Receive Date: 20090414
  Receipt Date: 20090407
  Transmission Date: 20091009
  Serious: Yes (Other)
  Sender: FDA-Public Use
  Company Number: US-AMGEN-US259294

PATIENT
  Sex: Female

DRUGS (8)
  1. ROMIPLOSTIM [Suspect]
     Indication: MYELODYSPLASTIC SYNDROME
     Route: 058
     Dates: start: 20060705, end: 20071205
  2. MULTI-VITAMINS [Concomitant]
  3. RALOXIFENE HCL [Concomitant]
  4. HYDROCHLOROTHIAZIDE [Concomitant]
  5. VALSARTAN [Concomitant]
  6. POTASSIUM CHLORIDE [Concomitant]
  7. CALCIUM CITRATE [Concomitant]
  8. MAGNESIUM SULFATE [Concomitant]

REACTIONS (1)
  - CHRONIC MYELOID LEUKAEMIA [None]
